FAERS Safety Report 11102953 (Version 1)
Quarter: 2015Q2

REPORT INFORMATION
  Report Type: Spontaneous
  Country: BR (occurrence: BR)
  Receive Date: 20150511
  Receipt Date: 20150511
  Transmission Date: 20150821
  Serious: Yes (Hospitalization, Other)
  Sender: FDA-Public Use
  Company Number: BR-009507513-1505BRA001656

PATIENT
  Age: 38 Year
  Sex: Female
  Weight: 70 kg

DRUGS (2)
  1. NUVARING [Suspect]
     Active Substance: ETHINYL ESTRADIOL\ETONOGESTREL
     Dosage: 1 DF, 3 WEEKS OF USE AND ONE WEEK OF PAUSE
     Route: 067
     Dates: start: 20150424
  2. NUVARING [Suspect]
     Active Substance: ETHINYL ESTRADIOL\ETONOGESTREL
     Indication: CONTRACEPTION
     Dosage: 1 DF, 3 WEEKS OF USE AND ONE WEEK OF PAUSE
     Route: 067
     Dates: start: 2011, end: 201401

REACTIONS (6)
  - Complication of delivery [Recovered/Resolved]
  - Caesarean section [Recovered/Resolved]
  - Breast feeding [Unknown]
  - Suppressed lactation [Not Recovered/Not Resolved]
  - Amniotic fluid volume decreased [Recovered/Resolved]
  - Maternal exposure before pregnancy [Unknown]

NARRATIVE: CASE EVENT DATE: 201503
